FAERS Safety Report 17835401 (Version 1)
Quarter: 2020Q2

REPORT INFORMATION
  Report Type: Spontaneous
  Country: US (occurrence: US)
  Receive Date: 20200528
  Receipt Date: 20200528
  Transmission Date: 20200714
  Serious: Yes (Disabling, Other)
  Sender: FDA-Public Use
  Company Number: US-SA-2020SA135605

PATIENT
  Age: 59 Year
  Sex: Female

DRUGS (1)
  1. KEVZARA [Suspect]
     Active Substance: SARILUMAB
     Indication: RHEUMATOID ARTHRITIS
     Dosage: 200 MG, QOW
     Route: 058
     Dates: start: 201905

REACTIONS (8)
  - Arthralgia [Not Recovered/Not Resolved]
  - Cough [Recovered/Resolved]
  - Product dose omission [Unknown]
  - Pulmonary hypertension [Unknown]
  - Upper respiratory tract infection [Unknown]
  - Loss of personal independence in daily activities [Unknown]
  - Rhinorrhoea [Recovered/Resolved]
  - Sneezing [Recovered/Resolved]

NARRATIVE: CASE EVENT DATE: 202005
